FAERS Safety Report 12823881 (Version 2)
Quarter: 2016Q4

REPORT INFORMATION
  Report Type: Spontaneous
  Country: US (occurrence: US)
  Receive Date: 20161007
  Receipt Date: 20161205
  Transmission Date: 20170207
  Serious: No
  Sender: FDA-Public Use
  Company Number: US-GLAXOSMITHKLINE-US2016146410

PATIENT
  Age: 59 Year
  Sex: Female

DRUGS (18)
  1. CALTRATE [Concomitant]
     Active Substance: CALCIUM CARBONATE
  2. NASONEX [Concomitant]
     Active Substance: MOMETASONE FUROATE
  3. NORTRIPTYLINE [Concomitant]
     Active Substance: NORTRIPTYLINE
  4. SIMVASTATIN. [Concomitant]
     Active Substance: SIMVASTATIN
  5. ASPIRIN. [Concomitant]
     Active Substance: ASPIRIN
  6. GLIPIZIDE. [Concomitant]
     Active Substance: GLIPIZIDE
  7. LORATADINE. [Concomitant]
     Active Substance: LORATADINE
  8. MELOXICAM. [Concomitant]
     Active Substance: MELOXICAM
  9. BISOPROLOL + HYDROCHLOROTHIAZIDE [Concomitant]
  10. LYRICA [Concomitant]
     Active Substance: PREGABALIN
  11. SYNTHROID [Concomitant]
     Active Substance: LEVOTHYROXINE SODIUM
  12. METFORMIN [Concomitant]
     Active Substance: METFORMIN HYDROCHLORIDE
  13. CYCLOBENZAPRINE [Concomitant]
     Active Substance: CYCLOBENZAPRINE
  14. OMEPRAZOLE. [Concomitant]
     Active Substance: OMEPRAZOLE
  15. SERTRALINE [Concomitant]
     Active Substance: SERTRALINE HYDROCHLORIDE
  16. LOVAZA [Suspect]
     Active Substance: OMEGA-3-ACID ETHYL ESTERS
     Indication: ARTHRITIS
     Dosage: 2 G, BID
     Route: 048
  17. LISINOPRIL. [Concomitant]
     Active Substance: LISINOPRIL
  18. VITAMIN E [Concomitant]
     Active Substance: .ALPHA.-TOCOPHEROL

REACTIONS (6)
  - Migraine [Unknown]
  - Product physical issue [Unknown]
  - Poor quality drug administered [Unknown]
  - Product quality issue [Unknown]
  - Abdominal discomfort [Unknown]
  - Off label use [Unknown]

NARRATIVE: CASE EVENT DATE: 20161002
